FAERS Safety Report 17494542 (Version 1)
Quarter: 2020Q1

REPORT INFORMATION
  Report Type: Spontaneous
  Country: US (occurrence: US)
  Receive Date: 20200229
  Receipt Date: 20200229
  Transmission Date: 20200409
  Serious: Yes (Disabling)
  Sender: FDA-Public Use
  Company Number: None

PATIENT
  Age: 29 Year
  Sex: Female
  Weight: 100 kg

DRUGS (1)
  1. CLOBETASOL CREAM [Suspect]
     Active Substance: CLOBETASOL

REACTIONS (2)
  - Rosacea [None]
  - Erythema [None]

NARRATIVE: CASE EVENT DATE: 20200225
